FAERS Safety Report 10216125 (Version 1)
Quarter: 2014Q2

REPORT INFORMATION
  Report Type: Spontaneous
  Country: US (occurrence: None)
  Receive Date: 20140602
  Receipt Date: 20140602
  Transmission Date: 20141212
  Serious: Yes (Life-Threatening)
  Sender: FDA-Public Use
  Company Number: 2014P1004460

PATIENT
  Sex: 0

DRUGS (1)
  1. PROTAMINE [Suspect]
     Indication: HAEMORRHAGE

REACTIONS (3)
  - Hypotension [None]
  - Pulseless electrical activity [None]
  - Hypersensitivity [None]
